FAERS Safety Report 6784437-1 (Version None)
Quarter: 2010Q2

REPORT INFORMATION
  Report Type: 
  Country: None (occurrence: None)
  Receive Date: 20100617
  Receipt Date: 20100521
  Transmission Date: 20101027
  Serious: Yes (Hospitalization, Other)
  Sender: FDA-Public Use
  Company Number: 20108891

PATIENT
  Age: 86 Year
  Sex: Female

DRUGS (5)
  1. LIORESAL [Suspect]
     Indication: MUSCLE SPASTICITY
     Dosage: UP TO 30 MCG, DAILY, INTRATHECAL
     Route: 037
  2. ZICONITIDE [Concomitant]
  3. FENTANYL [Concomitant]
  4. SUFENTAIL [Concomitant]
  5. ORAL METHADONE [Concomitant]

REACTIONS (14)
  - BACK PAIN [None]
  - CONFUSIONAL STATE [None]
  - FAECAL INCONTINENCE [None]
  - GAIT DISTURBANCE [None]
  - GRANULOMA [None]
  - HALLUCINATION [None]
  - IATROGENIC INJURY [None]
  - MEDICAL DEVICE COMPLICATION [None]
  - MUSCULAR WEAKNESS [None]
  - PAIN [None]
  - SENSORY DISTURBANCE [None]
  - SOMNOLENCE [None]
  - URINARY INCONTINENCE [None]
  - WEIGHT BEARING DIFFICULTY [None]
